FAERS Safety Report 6883945-2 (Version None)
Quarter: 2010Q3

REPORT INFORMATION
  Report Type: 
  Country: None (occurrence: None)
  Receive Date: 20100729
  Receipt Date: 20100719
  Transmission Date: 20110219
  Serious: Yes (Hospitalization)
  Sender: FDA-Public Use
  Company Number: US-BAXTER-2010BH019219

PATIENT
  Age: 74 Year
  Sex: Female
  Weight: 77 kg

DRUGS (17)
  1. MORPHINE SULFATE [Suspect]
     Indication: INCISION SITE PAIN
     Route: 042
     Dates: start: 20100406, end: 20100406
  2. MORPHINE SULFATE [Suspect]
     Route: 042
     Dates: start: 20100406, end: 20100406
  3. MORPHINE SULFATE [Suspect]
     Route: 042
     Dates: start: 20100407, end: 20100407
  4. MORPHINE SULFATE [Suspect]
     Route: 042
     Dates: start: 20100406, end: 20100406
  5. MORPHINE SULFATE [Suspect]
     Route: 042
     Dates: start: 20100407, end: 20100407
  6. CARBIDOPA AND LEVODOPA [Suspect]
     Indication: PARKINSON'S DISEASE
     Route: 048
     Dates: start: 20100330
  7. CARBIDOPA AND LEVODOPA [Suspect]
     Route: 048
     Dates: start: 20100330
  8. CYANOCOBALAMIN ^ALLERGAN^ [Concomitant]
     Indication: PRODUCT USED FOR UNKNOWN INDICATION
     Route: 065
  9. CARBIDOPA + LEVODOPA [Concomitant]
     Indication: PRODUCT USED FOR UNKNOWN INDICATION
     Route: 048
  10. ESOMEPRAZOLE MAGNESIUM [Concomitant]
     Indication: PRODUCT USED FOR UNKNOWN INDICATION
     Route: 065
     Dates: start: 20100405, end: 20100410
  11. METRONIDAZOLE [Concomitant]
     Indication: PRODUCT USED FOR UNKNOWN INDICATION
     Route: 065
     Dates: start: 20100406, end: 20100406
  12. CYCLOBENZAPRINE HYDROCHLORIDE [Concomitant]
     Indication: PRODUCT USED FOR UNKNOWN INDICATION
     Route: 065
     Dates: start: 20100407, end: 20100410
  13. GENTAMICIN [Concomitant]
     Indication: PRODUCT USED FOR UNKNOWN INDICATION
     Route: 065
     Dates: start: 20100406, end: 20100406
  14. CALCIUM CARBONATE W/CHOLECALCIFEROL/SODIUM [Concomitant]
     Indication: PRODUCT USED FOR UNKNOWN INDICATION
     Route: 065
     Dates: start: 20060101
  15. MULTI-VITAMINS [Concomitant]
     Indication: PRODUCT USED FOR UNKNOWN INDICATION
     Route: 065
     Dates: start: 20000101
  16. LOVAZA [Concomitant]
     Indication: PRODUCT USED FOR UNKNOWN INDICATION
     Route: 065
     Dates: start: 20100407, end: 20100410
  17. ACETAMINOPHEN [Concomitant]
     Indication: PRODUCT USED FOR UNKNOWN INDICATION
     Route: 065
     Dates: start: 20100410, end: 20100410

REACTIONS (4)
  - ABDOMINAL DISTENSION [None]
  - ABDOMINAL PAIN [None]
  - POSTOPERATIVE ILEUS [None]
  - VOMITING [None]
